FAERS Safety Report 11277201 (Version 2)
Quarter: 2015Q3

REPORT INFORMATION
  Report Type: Spontaneous
  Country: US (occurrence: US)
  Receive Date: 20150716
  Receipt Date: 20150923
  Transmission Date: 20151125
  Serious: No
  Sender: FDA-Public Use
  Company Number: US-PFIZER INC-2015233430

PATIENT
  Age: 52 Year
  Sex: Male

DRUGS (3)
  1. DILANTIN [Suspect]
     Active Substance: PHENYTOIN
     Indication: OCCIPITAL NEURALGIA
  2. DILANTIN [Suspect]
     Active Substance: PHENYTOIN
     Indication: PAIN
     Dosage: UNK
  3. DILANTIN [Suspect]
     Active Substance: PHENYTOIN
     Indication: GENERALISED TONIC-CLONIC SEIZURE

REACTIONS (2)
  - Product use issue [Unknown]
  - Drug hypersensitivity [Unknown]
